FAERS Safety Report 5484170-2 (Version None)
Quarter: 2007Q4

REPORT INFORMATION
  Report Type: 
  Country: None (occurrence: None)
  Receive Date: 20071009
  Receipt Date: 20071009
  Transmission Date: 20080405
  Serious: Yes (Other)
  Sender: FDA-Public Use
  Company Number: None

PATIENT
  Age: 43 Year
  Sex: Female
  Weight: 57.6068 kg

DRUGS (5)
  1. CLONAZEPAM [Suspect]
     Indication: PANIC ATTACK
     Dosage: 0.5 MG PO BID
     Route: 048
     Dates: start: 19980101
  2. CLONAZEPAM [Suspect]
     Indication: PANIC ATTACK
     Dosage: 0.5 MG PO BID
     Route: 048
     Dates: start: 20030101
  3. PROZAC [Concomitant]
  4. DYAZIDE [Concomitant]
  5. EFFEXOR [Concomitant]

REACTIONS (3)
  - NIGHTMARE [None]
  - PANIC ATTACK [None]
  - PARASOMNIA [None]
